FAERS Safety Report 24253502 (Version 1)
Quarter: 2024Q3

REPORT INFORMATION
  Report Type: Spontaneous
  Country: SE (occurrence: SE)
  Receive Date: 20240827
  Receipt Date: 20240827
  Transmission Date: 20241016
  Serious: Yes (Other)
  Sender: ACCORD
  Company Number: None

PATIENT
  Age: 30 Year
  Sex: Female

DRUGS (17)
  1. QUETIAPINE [Suspect]
     Active Substance: QUETIAPINE
     Indication: Product used for unknown indication
  2. ARCOXIA [Concomitant]
     Active Substance: ETORICOXIB
     Dosage: STRENGTH: 90MG
     Dates: start: 20190319
  3. FERROUS SULFATE [Concomitant]
     Active Substance: FERROUS SULFATE
     Dates: start: 20220729
  4. FLUTICASONE PROPIONATE [Concomitant]
     Active Substance: FLUTICASONE PROPIONATE
     Dosage: 1 APPLICATION AS REQUIRED 1 TIMES DAILY
     Dates: start: 20170407
  5. LEVOTHYROXINE SODIUM [Concomitant]
     Active Substance: LEVOTHYROXINE SODIUM
     Dates: start: 20170406
  6. NOVORAPID [Concomitant]
     Active Substance: INSULIN ASPART
     Dosage: ACCORDING TO SPECIAL PRESCRIPTION
     Dates: start: 20170413
  7. ATORVASTATIN [Concomitant]
     Active Substance: ATORVASTATIN
     Dates: start: 20210701
  8. INSULIN ASPART [Concomitant]
     Active Substance: INSULIN ASPART
     Dosage: ACCORDING TO SPECIAL PRESCRIPTION: PUMP INSULIN ACCORDING TO PRESCRIPTION
     Dates: start: 20230206
  9. BETAMETHASONE DIPROPIONATE [Concomitant]
     Active Substance: BETAMETHASONE DIPROPIONATE
     Dosage: 1 APPLICATION AS REQUIRED 1 TIMES DAILY
     Dates: start: 20170407
  10. HERBALS\KARAYA GUM [Concomitant]
     Active Substance: HERBALS\KARAYA GUM
     Dates: start: 20220726
  11. UREA [Concomitant]
     Active Substance: UREA
     Dosage: 1 APPLICATION AS REQUIRED
     Dates: start: 20170403
  12. ISOPHANE INSULIN [Concomitant]
     Active Substance: INSULIN NOS
     Dosage: 11 U AT 08:00 HR AS REQUIRED AND 11 U AT 20:00 HR AS REQUIRED
     Dates: start: 20230206
  13. INSULIN ASPART [Concomitant]
     Active Substance: INSULIN ASPART
     Dates: start: 20221020
  14. DULOXETINE [Concomitant]
     Active Substance: DULOXETINE
     Dates: start: 20240129
  15. LEVOTHYROXINE SODIUM [Concomitant]
     Active Substance: LEVOTHYROXINE SODIUM
     Dates: start: 20170408
  16. NOVORAPID [Concomitant]
     Active Substance: INSULIN ASPART
     Dosage: SOLUTION FOR INJECTION IN CARTRIDGE
     Dates: start: 20211102
  17. DULOXETINE [Concomitant]
     Active Substance: DULOXETINE
     Dates: start: 20240129

REACTIONS (3)
  - Depressed mood [Unknown]
  - Hypomania [Unknown]
  - Fatigue [Unknown]

NARRATIVE: CASE EVENT DATE: 20240101
